FAERS Safety Report 5618559-5 (Version None)
Quarter: 2008Q1

REPORT INFORMATION
  Report Type: 
  Country: None (occurrence: None)
  Receive Date: 20080207
  Receipt Date: 20080125
  Transmission Date: 20080703
  Serious: Yes (Disabling, Other)
  Sender: FDA-Public Use
  Company Number: DE-AMGEN-UK112828

PATIENT
  Age: 66 Year
  Sex: Male

DRUGS (7)
  1. KINERET [Suspect]
     Indication: RHEUMATOID ARTHRITIS
     Route: 058
     Dates: start: 20030601, end: 20031201
  2. INFLIXIMAB [Suspect]
     Dates: start: 20030201, end: 20030401
  3. ADALIMUMAB [Concomitant]
     Dates: end: 20040801
  4. PREDNISOLONE [Concomitant]
  5. KETOPROFEN [Concomitant]
     Route: 065
  6. NOVAMINSULFON [Concomitant]
     Route: 065
  7. MORPHINE [Concomitant]

REACTIONS (2)
  - ASTHENIA [None]
  - JOINT STIFFNESS [None]
